FAERS Safety Report 4296009-1 (Version None)
Quarter: 2004Q1

REPORT INFORMATION
  Report Type: 
  Country: None (occurrence: None)
  Receive Date: 20040212
  Receipt Date: 20040204
  Transmission Date: 20041129
  Serious: Yes (Death)
  Sender: FDA-Public Use
  Company Number: 2004AP00584

PATIENT
  Age: 53 Year
  Sex: Female
  Weight: 48 kg

DRUGS (22)
  1. SEROQUEL [Suspect]
     Indication: DELUSION
     Dosage: 100 MG QD PO
     Route: 048
     Dates: start: 20030807, end: 20030807
  2. SEROQUEL [Suspect]
     Indication: HALLUCINATION
     Dosage: 100 MG QD PO
     Route: 048
     Dates: start: 20030807, end: 20030807
  3. SEROQUEL [Suspect]
     Indication: DELUSION
     Dosage: 100 MG BID PO
     Route: 048
     Dates: start: 20030808, end: 20030819
  4. SEROQUEL [Suspect]
     Indication: HALLUCINATION
     Dosage: 100 MG BID PO
     Route: 048
     Dates: start: 20030808, end: 20030819
  5. SEROQUEL [Suspect]
     Indication: DELUSION
     Dosage: 100 MG TID PO
     Route: 048
     Dates: start: 20030820, end: 20030909
  6. SEROQUEL [Suspect]
     Indication: HALLUCINATION
     Dosage: 100 MG TID PO
     Route: 048
     Dates: start: 20030820, end: 20030909
  7. SEROQUEL [Suspect]
     Indication: DELUSION
     Dosage: 400 MG DAILY PO
     Route: 048
     Dates: start: 20030910, end: 20030923
  8. SEROQUEL [Suspect]
     Indication: HALLUCINATION
     Dosage: 400 MG DAILY PO
     Route: 048
     Dates: start: 20030910, end: 20030923
  9. SEROQUEL [Suspect]
     Indication: DELUSION
     Dosage: 100 MG BID PO
     Route: 048
     Dates: start: 20030924
  10. SEROQUEL [Suspect]
     Indication: HALLUCINATION
     Dosage: 100 MG BID PO
     Route: 048
     Dates: start: 20030924
  11. IMPROMEN [Suspect]
     Indication: DELUSION
     Dosage: 1 MG TID PO
     Route: 048
     Dates: start: 20030911, end: 20030930
  12. IMPROMEN [Suspect]
     Indication: HALLUCINATION
     Dosage: 1 MG TID PO
     Route: 048
     Dates: start: 20030911, end: 20030930
  13. IMPROMEN [Suspect]
     Indication: DELUSION
     Dosage: 3 MG TID PO
     Route: 048
     Dates: start: 20031001, end: 20031009
  14. IMPROMEN [Suspect]
     Indication: HALLUCINATION
     Dosage: 3 MG TID PO
     Route: 048
     Dates: start: 20031001, end: 20031009
  15. IMPROMEN [Suspect]
     Indication: DELUSION
     Dosage: 3 MG DAILY PO
     Route: 048
     Dates: start: 20031008
  16. IMPROMEN [Suspect]
     Indication: HALLUCINATION
     Dosage: 3 MG DAILY PO
     Route: 048
     Dates: start: 20031008
  17. ABILIT [Suspect]
     Indication: DELUSION
     Dates: start: 20030915
  18. ABILIT [Suspect]
     Indication: HALLUCINATION
     Dates: start: 20030915
  19. HALCION [Concomitant]
  20. MUCOSTA [Concomitant]
  21. GASTER [Concomitant]
  22. PURSENNID [Concomitant]

REACTIONS (25)
  - ARRHYTHMIA [None]
  - BILIARY NEOPLASM [None]
  - COGNITIVE DISORDER [None]
  - CYSTITIS [None]
  - DIET REFUSAL [None]
  - ELECTROCARDIOGRAM QT PROLONGED [None]
  - FALL [None]
  - GASTRIC ULCER HAEMORRHAGE [None]
  - GASTRITIS [None]
  - GASTRITIS EROSIVE [None]
  - GASTROINTESTINAL EROSION [None]
  - GOITRE [None]
  - MELANOSIS [None]
  - MYDRIASIS [None]
  - PAROVARIAN CYST [None]
  - PSYCHIATRIC SYMPTOM [None]
  - PULSE ABSENT [None]
  - PYREXIA [None]
  - RESPIRATORY ARREST [None]
  - SHOCK [None]
  - STUPOR [None]
  - SUDDEN DEATH [None]
  - TONGUE BLACK HAIRY [None]
  - TONSILLITIS [None]
  - VOMITING [None]
